FAERS Safety Report 7289381-1 (Version None)
Quarter: 2011Q1

REPORT INFORMATION
  Report Type: 
  Country: None (occurrence: None)
  Receive Date: 20110211
  Receipt Date: 20110207
  Transmission Date: 20110831
  Serious: Yes (Other)
  Sender: FDA-Public Use
  Company Number: US-PFIZER INC-2011027444

PATIENT
  Sex: Male
  Weight: 83.9 kg

DRUGS (4)
  1. CELEBREX [Suspect]
     Indication: POSTOPERATIVE ANALGESIA
     Dosage: 200 MG, DAILY
     Route: 048
     Dates: start: 20110125, end: 20110128
  2. OXYCODONE [Concomitant]
     Dosage: 5 MG, UNK
  3. GLIPIZIDE [Concomitant]
     Dosage: UNK
  4. METFORMIN [Concomitant]
     Dosage: UNK

REACTIONS (4)
  - ABDOMINAL PAIN UPPER [None]
  - NAUSEA [None]
  - DYSPEPSIA [None]
  - ABDOMINAL DISCOMFORT [None]
